FAERS Safety Report 14054659 (Version 1)
Quarter: 2017Q4

REPORT INFORMATION
  Report Type: Spontaneous
  Country: US (occurrence: US)
  Receive Date: 20171006
  Receipt Date: 20171006
  Transmission Date: 20180321
  Serious: No
  Sender: FDA-Public Use
  Company Number: US-JNJFOC-20170710082

PATIENT
  Age: 74 Year
  Sex: Female
  Weight: 79.38 kg

DRUGS (2)
  1. WOMENS ROGAINE UNSCENTED [Suspect]
     Active Substance: MINOXIDIL
     Route: 061
  2. WOMENS ROGAINE UNSCENTED [Suspect]
     Active Substance: MINOXIDIL
     Indication: PRODUCT USED FOR UNKNOWN INDICATION
     Dosage: 3 OR 4 CAPFUL ONTO HER FINGERS,  ABOUT 2 WEEKS AGO
     Route: 061

REACTIONS (3)
  - Overdose [Unknown]
  - Hair disorder [Unknown]
  - Product quality issue [Unknown]
